FAERS Safety Report 5847542-X (Version None)
Quarter: 2008Q3

REPORT INFORMATION
  Report Type: 
  Country: None (occurrence: None)
  Receive Date: 20080814
  Receipt Date: 20080729
  Transmission Date: 20090109
  Serious: Yes (Hospitalization)
  Sender: FDA-Public Use
  Company Number: 2008BI016651

PATIENT
  Age: 44 Year
  Sex: Female

DRUGS (6)
  1. TYSABRI [Suspect]
     Indication: MULTIPLE SCLEROSIS
     Dosage: 300MG; QM; IV
     Route: 042
     Dates: start: 20080318
  2. TOPAMAX [Concomitant]
  3. NEURONTIN [Concomitant]
  4. CYMBALTA [Concomitant]
  5. ADDERALL 10 [Concomitant]
  6. SYNTHROID [Concomitant]

REACTIONS (10)
  - ATAXIA [None]
  - CELLULITIS [None]
  - CHILLS [None]
  - DEHYDRATION [None]
  - FATIGUE [None]
  - GROIN PAIN [None]
  - HYPERHIDROSIS [None]
  - MUSCULAR WEAKNESS [None]
  - PYREXIA [None]
  - URINARY TRACT INFECTION [None]
